FAERS Safety Report 24899720 (Version 1)
Quarter: 2025Q1

REPORT INFORMATION
  Report Type: Spontaneous
  Country: TH (occurrence: TH)
  Receive Date: 20250129
  Receipt Date: 20250129
  Transmission Date: 20250408
  Serious: Yes (Other)
  Sender: SANDOZ
  Company Number: TH-002147023-NVSC2025TH000495

PATIENT
  Age: 81 Year
  Sex: Female

DRUGS (7)
  1. FULVESTRANT [Suspect]
     Active Substance: FULVESTRANT
     Indication: Product used for unknown indication
     Dosage: 500 MG, QMO
     Route: 065
  2. KISQALI [Suspect]
     Active Substance: RIBOCICLIB
     Dosage: 2 DOSAGE FORM, QD
     Route: 048
     Dates: start: 202406
  3. KISQALI [Suspect]
     Active Substance: RIBOCICLIB
     Dosage: 3 DOSAGE FORM, QD
     Route: 048
  4. KISQALI [Suspect]
     Active Substance: RIBOCICLIB
     Indication: Breast cancer metastatic
     Dosage: 400 MG, QD
     Route: 048
     Dates: start: 202402
  5. KISQALI [Suspect]
     Active Substance: RIBOCICLIB
     Route: 048
     Dates: end: 20241216
  6. Duocet [Concomitant]
     Indication: Product used for unknown indication
     Route: 048
  7. PREVACID [Concomitant]
     Active Substance: LANSOPRAZOLE
     Indication: Product used for unknown indication
     Dosage: 30 MG, QD
     Route: 065

REACTIONS (12)
  - Gastric ulcer [Unknown]
  - Upper gastrointestinal haemorrhage [Recovering/Resolving]
  - Duodenal ulcer [Unknown]
  - Erosive duodenitis [Unknown]
  - Enteritis [Unknown]
  - Haemorrhoids [Unknown]
  - Blood chloride increased [Unknown]
  - Globulins decreased [Unknown]
  - Protein total decreased [Unknown]
  - Blood urea decreased [Unknown]
  - Blood albumin decreased [Unknown]
  - Anaemia [Unknown]

NARRATIVE: CASE EVENT DATE: 20241108
